FAERS Safety Report 23162721 (Version 1)
Quarter: 2023Q4

REPORT INFORMATION
  Report Type: Spontaneous
  Country: US (occurrence: US)
  Receive Date: 20231109
  Receipt Date: 20231109
  Transmission Date: 20240109
  Serious: Yes (Other)
  Sender: FDA-Public Use
  Company Number: US-Shilpa Medicare Limited-SML-US-2023-01501

PATIENT
  Age: 7 Decade
  Sex: Female

DRUGS (1)
  1. CAPECITABINE [Suspect]
     Active Substance: CAPECITABINE
     Indication: Colorectal cancer stage III
     Dates: start: 20210721, end: 20210922

REACTIONS (3)
  - Disease recurrence [Unknown]
  - Drug ineffective [Unknown]
  - Treatment failure [Unknown]
